FAERS Safety Report 12237102 (Version 1)
Quarter: 2016Q2

REPORT INFORMATION
  Report Type: Report from Study
  Country: US (occurrence: US)
  Receive Date: 20160405
  Receipt Date: 20160405
  Transmission Date: 20160815
  Serious: Yes (Other)
  Sender: FDA-Public Use
  Company Number: US-AMGEN-USASL2016040148

PATIENT
  Age: 52 Year
  Sex: Female

DRUGS (1)
  1. ENBREL [Suspect]
     Active Substance: ETANERCEPT
     Indication: RHEUMATOID ARTHRITIS
     Dosage: UNK UNK, QWK
     Route: 065
     Dates: start: 20160112

REACTIONS (10)
  - Peripheral swelling [Unknown]
  - Headache [Recovered/Resolved]
  - Feeling abnormal [Unknown]
  - Menstruation irregular [Unknown]
  - Autonomic neuropathy [Unknown]
  - Erythema [Unknown]
  - Syncope [Unknown]
  - Discomfort [Unknown]
  - Tearfulness [Unknown]
  - Rheumatoid arthritis [Unknown]

NARRATIVE: CASE EVENT DATE: 2016
